FAERS Safety Report 7460298-2 (Version None)
Quarter: 2011Q2

REPORT INFORMATION
  Report Type: 
  Country: None (occurrence: None)
  Receive Date: 20110505
  Receipt Date: 20110421
  Transmission Date: 20111010
  Serious: Yes (Other)
  Sender: FDA-Public Use
  Company Number: US-JNJFOC-20110102057

PATIENT
  Age: 42 Year
  Sex: Female

DRUGS (2)
  1. CIPRO [Suspect]
     Indication: PRODUCT USED FOR UNKNOWN INDICATION
     Route: 065
  2. LEVAQUIN [Suspect]
     Indication: URINARY TRACT INFECTION
     Route: 065

REACTIONS (5)
  - PAIN [None]
  - APHAGIA [None]
  - NEUROPATHY PERIPHERAL [None]
  - NERVE INJURY [None]
  - PARESIS [None]
